FAERS Safety Report 17446451 (Version 1)
Quarter: 2020Q1

REPORT INFORMATION
  Report Type: Spontaneous
  Country: US (occurrence: US)
  Receive Date: 20200221
  Receipt Date: 20200221
  Transmission Date: 20200409
  Serious: Yes (Other)
  Sender: FDA-Public Use
  Company Number: US-COVIS PHARMA B.V.-2020COV00068

PATIENT
  Sex: Male
  Weight: 68.03 kg

DRUGS (11)
  1. ALFUZOSIN [Concomitant]
     Active Substance: ALFUZOSIN
     Dosage: 10 MG, 1X/DAY
  2. SEREVENT DISKUS [Concomitant]
     Active Substance: SALMETEROL XINAFOATE
     Dosage: TAKES BEFORE ALVESCO
  3. ALVESCO [Suspect]
     Active Substance: CICLESONIDE
     Indication: OROPHARYNGEAL PAIN
     Dosage: 1 PUFF, 1X/DAY IN THE MORNING AS NEEDED
     Dates: start: 2012
  4. OMEPRAZOLE. [Concomitant]
     Active Substance: OMEPRAZOLE
     Dosage: 20 MG, 2X/DAY
  5. ATORVASTATIN [Concomitant]
     Active Substance: ATORVASTATIN
     Dosage: 10 MG, 1X/DAY
  6. CALCIUM [Concomitant]
     Active Substance: CALCIUM
  7. IRON [Concomitant]
     Active Substance: IRON
  8. FLUTICASONE. [Concomitant]
     Active Substance: FLUTICASONE
     Dosage: UNK, 1X/DAY IN THE EVENING
  9. MAGNESIUM [Concomitant]
     Active Substance: MAGNESIUM
  10. ZINC. [Concomitant]
     Active Substance: ZINC
  11. ALVESCO [Suspect]
     Active Substance: CICLESONIDE
     Indication: ASTHMA
     Dosage: 2 PUFFS, 1X/DAY IN THE EVENING
     Dates: start: 2012

REACTIONS (10)
  - Drug ineffective [Not Recovered/Not Resolved]
  - Throat irritation [Recovered/Resolved]
  - Dysphonia [Not Recovered/Not Resolved]
  - Vocal cord atrophy [Unknown]
  - Drug ineffective for unapproved indication [Recovered/Resolved]
  - Post procedural complication [Recovered/Resolved]
  - Asthma [Not Recovered/Not Resolved]
  - Nasopharyngitis [Recovering/Resolving]
  - Immune system disorder [Unknown]
  - Nephrolithiasis [Recovered/Resolved]

NARRATIVE: CASE EVENT DATE: 2012
